FAERS Safety Report 9661201 (Version 3)
Quarter: 2014Q1

REPORT INFORMATION
  Report Type: Spontaneous
  Country: US (occurrence: US)
  Receive Date: 20131031
  Receipt Date: 20140207
  Transmission Date: 20141002
  Serious: Yes (Other)
  Sender: FDA-Public Use
  Company Number: US-SA-2013SA108609

PATIENT
  Age: 42 Year
  Sex: Male

DRUGS (15)
  1. FABRAZYME [Suspect]
     Indication: FABRY^S DISEASE
     Route: 042
     Dates: start: 2010
  2. BENADRYL [Concomitant]
     Indication: PREMEDICATION
  3. ACETAMINOPHEN [Concomitant]
     Indication: PREMEDICATION
  4. AMITRIPTYLINE [Concomitant]
  5. ASPIRIN [Concomitant]
  6. PEPCID [Concomitant]
  7. HYDROCHLOROTHIAZIDE [Concomitant]
  8. METOPROLOL [Concomitant]
  9. CELLCEPT [Concomitant]
  10. K-PHOS NEUTRAL [Concomitant]
  11. PRAVASTATIN [Concomitant]
  12. PREDNISONE [Concomitant]
  13. SENOKOT-S [Concomitant]
  14. BACTRIM [Concomitant]
  15. PROGRAF [Concomitant]

REACTIONS (1)
  - Renal failure chronic [Not Recovered/Not Resolved]
